FAERS Safety Report 25237642 (Version 1)
Quarter: 2025Q2

REPORT INFORMATION
  Report Type: Spontaneous
  Country: AU (occurrence: AU)
  Receive Date: 20250425
  Receipt Date: 20250425
  Transmission Date: 20250717
  Serious: Yes (Other)
  Sender: Alvotech
  Company Number: None

PATIENT

DRUGS (4)
  1. ADALIMUMAB [Suspect]
     Active Substance: ADALIMUMAB
     Indication: Product used for unknown indication
     Route: 058
  2. GOLIMUMAB [Suspect]
     Active Substance: GOLIMUMAB
     Indication: Psoriatic arthropathy
     Route: 058
  3. GOLIMUMAB [Suspect]
     Active Substance: GOLIMUMAB
     Indication: Inflammatory bowel disease
     Route: 058
  4. GOLIMUMAB [Suspect]
     Active Substance: GOLIMUMAB
     Indication: Axial spondyloarthritis
     Route: 058

REACTIONS (3)
  - Inflammatory bowel disease [Not Recovered/Not Resolved]
  - Therapeutic response decreased [Unknown]
  - Psoriatic arthropathy [Unknown]
